FAERS Safety Report 10228481 (Version 3)
Quarter: 2014Q3

REPORT INFORMATION
  Report Type: Spontaneous
  Country: US (occurrence: US)
  Receive Date: 20140610
  Receipt Date: 20140902
  Transmission Date: 20150326
  Serious: Yes (Hospitalization)
  Sender: FDA-Public Use
  Company Number: US-BAYER-2014-084468

PATIENT
  Age: 29 Year
  Sex: Female

DRUGS (6)
  1. YAZ [Suspect]
     Active Substance: DROSPIRENONE\ETHINYL ESTRADIOL
     Indication: PREMENSTRUAL SYNDROME
  2. YASMIN [Suspect]
     Active Substance: DROSPIRENONE\ETHINYL ESTRADIOL
     Indication: ACNE
     Dosage: UNK
     Dates: start: 2006, end: 2007
  3. YASMIN [Suspect]
     Active Substance: DROSPIRENONE\ETHINYL ESTRADIOL
     Indication: PREMENSTRUAL SYNDROME
  4. GERITOL [VITAMINS NOS] [Concomitant]
     Dosage: UNK
     Dates: start: 1996
  5. BENZONATATE. [Concomitant]
     Active Substance: BENZONATATE
  6. YAZ [Suspect]
     Active Substance: DROSPIRENONE\ETHINYL ESTRADIOL
     Indication: ACNE
     Dosage: UNK
     Dates: start: 2006, end: 2007

REACTIONS (14)
  - Injury [None]
  - Emotional distress [None]
  - Drug ineffective [None]
  - Deep vein thrombosis [None]
  - Migraine [None]
  - Pain [None]
  - Thrombosis [None]
  - Syncope [None]
  - Depression [None]
  - Acne [None]
  - General physical health deterioration [None]
  - Mental disorder [None]
  - Varicose vein [None]
  - Heart rate irregular [None]

NARRATIVE: CASE EVENT DATE: 200706
